FAERS Safety Report 9741113 (Version 1)
Quarter: 2013Q4

REPORT INFORMATION
  Report Type: Spontaneous
  Country: CA (occurrence: CA)
  Receive Date: 20131209
  Receipt Date: 20131209
  Transmission Date: 20140711
  Serious: Yes (Life-Threatening, Hospitalization)
  Sender: FDA-Public Use
  Company Number: CA-MYLANLABS-2013S1026862

PATIENT
  Age: 75 Year
  Sex: Female

DRUGS (7)
  1. CLARITHROMYCIN [Suspect]
     Indication: PNEUMONIA
     Route: 042
  2. CLARITHROMYCIN [Suspect]
     Indication: PNEUMONIA
     Route: 065
  3. CEFTRIAXONE [Concomitant]
     Indication: PNEUMONIA
     Route: 042
  4. METOPROLOL [Concomitant]
     Route: 065
  5. HYDROCHLOROTHIAZIDE W/LOSARTAN [Concomitant]
     Dosage: LOSARTAN 100MG/HYDROCHLOROTHIAZIDE 25MG DAILY
     Route: 065
  6. CRESTOR [Concomitant]
     Dosage: 40MG DAILY
     Route: 065
  7. PLAVIX [Concomitant]
     Dosage: 75MG DAILY
     Route: 065

REACTIONS (3)
  - Long QT syndrome [Recovered/Resolved]
  - Torsade de pointes [Recovered/Resolved]
  - Cardiac arrest [Recovered/Resolved]
